FAERS Safety Report 8807486 (Version 2)
Quarter: 2012Q4

REPORT INFORMATION
  Report Type: 
  Country: FR (occurrence: FR)
  Receive Date: 20120925
  Receipt Date: 20121023
  Transmission Date: 20130627
  Serious: Yes (Other)
  Sender: FDA-Public Use
  Company Number: FR-PFIZER INC-2012234732

PATIENT
  Age: 89 Year
  Sex: Female
  Weight: 58 kg

DRUGS (4)
  1. LYRICA [Suspect]
     Indication: NEURALGIA
     Dosage: 225 mg, daily
     Route: 048
  2. HEMIGOXINE [Concomitant]
  3. PREVISCAN [Concomitant]
  4. PIASCLEDINE [Concomitant]

REACTIONS (9)
  - Cardiac disorder [Unknown]
  - Haemorrhage [Unknown]
  - Skin fragility [Unknown]
  - Scratch [Unknown]
  - Skin haemorrhage [Unknown]
  - Skin wrinkling [Unknown]
  - Muscle spasms [Unknown]
  - Incontinence [Unknown]
  - Skin atrophy [Unknown]
